FAERS Safety Report 18108345 (Version 2)
Quarter: 2020Q3

REPORT INFORMATION
  Report Type: Spontaneous
  Country: US (occurrence: US)
  Receive Date: 20200804
  Receipt Date: 20200904
  Transmission Date: 20201103
  Serious: Yes (Other)
  Sender: FDA-Public Use
  Company Number: US-TERSERA THERAPEUTICS LLC-2020TRS002167

PATIENT

DRUGS (1)
  1. QUZYTTIR [Suspect]
     Active Substance: CETIRIZINE HYDROCHLORIDE
     Indication: WHITE BLOOD CELL DISORDER
     Dosage: 10 MG, QD (EVERY 24 HOURS), ONE DOSE
     Route: 042
     Dates: start: 20200706, end: 20200706

REACTIONS (2)
  - Anaphylactoid reaction [Recovered/Resolved]
  - Off label use [Unknown]

NARRATIVE: CASE EVENT DATE: 20200706
